FAERS Safety Report 8490468-6 (Version None)
Quarter: 2012Q3

REPORT INFORMATION
  Report Type: 
  Country: None (occurrence: None)
  Receive Date: 20120705
  Receipt Date: 20120628
  Transmission Date: 20120928
  Serious: Yes (Hospitalization, Other)
  Sender: FDA-Public Use
  Company Number: MX-SANOFI-AVENTIS-2012SA046191

PATIENT
  Age: 79 Year
  Sex: Female
  Weight: 100 kg

DRUGS (8)
  1. LANTUS [Suspect]
     Route: 058
     Dates: start: 20120615
  2. BUMETANIDE [Concomitant]
     Route: 048
     Dates: start: 20080101
  3. CILOSTAZOL [Concomitant]
     Route: 048
     Dates: start: 20120301
  4. LANTUS [Suspect]
     Indication: TYPE 2 DIABETES MELLITUS
     Route: 058
     Dates: start: 20090101, end: 20120615
  5. FOLIC ACID/IRON [Concomitant]
     Route: 048
     Dates: start: 20080101
  6. DAFLON [Concomitant]
     Route: 048
     Dates: start: 20120301
  7. AMLODIPINE/VALSARTAN [Concomitant]
     Route: 048
     Dates: start: 20060101
  8. ASPIRIN [Concomitant]
     Route: 048
     Dates: start: 20120301

REACTIONS (2)
  - DEEP VEIN THROMBOSIS [None]
  - HYPERGLYCAEMIA [None]
